FAERS Safety Report 25495819 (Version 3)
Quarter: 2025Q4

REPORT INFORMATION
  Report Type: Spontaneous
  Country: US (occurrence: US)
  Receive Date: 20250630
  Receipt Date: 20251021
  Transmission Date: 20260117
  Serious: No
  Sender: SANOFI AVENTIS
  Company Number: US-SA-2025SA183247

PATIENT
  Age: 32 Year
  Sex: Male

DRUGS (1)
  1. DUPIXENT [Suspect]
     Active Substance: DUPILUMAB
     Indication: Eosinophilic oesophagitis
     Dosage: 300 MG, QW
     Route: 058
     Dates: start: 202406

REACTIONS (6)
  - Throat tightness [Unknown]
  - Condition aggravated [Unknown]
  - Eosinophilic oesophagitis [Unknown]
  - Rebound effect [Unknown]
  - Gastrooesophageal reflux disease [Unknown]
  - Urticaria [Unknown]

NARRATIVE: CASE EVENT DATE: 20250601
